FAERS Safety Report 6905012-1 (Version None)
Quarter: 2010Q3

REPORT INFORMATION
  Report Type: 
  Country: None (occurrence: None)
  Receive Date: 20100804
  Receipt Date: 20090827
  Transmission Date: 20110219
  Serious: No
  Sender: FDA-Public Use
  Company Number: US-PFIZER INC-2009238210

PATIENT
  Sex: Female
  Weight: 65.8 kg

DRUGS (8)
  1. LYRICA [Suspect]
     Indication: FIBROMYALGIA
     Dosage: 100 MG, 2X/DAY
     Route: 048
  2. LEVOTHYROXINE SODIUM [Concomitant]
     Indication: HYPOTHYROIDISM
     Dosage: 35 MCG
     Route: 048
     Dates: start: 20020101
  3. DILTIAZEM HYDROCHLORIDE [Concomitant]
     Indication: BLOOD PRESSURE ABNORMAL
     Dosage: 240 MG
     Route: 048
     Dates: start: 20020101
  4. ATENOLOL [Concomitant]
     Indication: BLOOD PRESSURE ABNORMAL
     Dosage: 100 MG, 1X/DAY
     Route: 048
     Dates: start: 20020101
  5. ACETYLSALICYLIC ACID [Concomitant]
     Dosage: 81 MG
     Route: 048
     Dates: start: 20020101
  6. AMBIEN [Concomitant]
     Dosage: 5 MG
     Route: 048
     Dates: start: 20020101
  7. VYTORIN [Concomitant]
     Indication: CORONARY ARTERY DISEASE
     Dosage: EZETIMIBE 10MG/SIMVASTATIN 20MG; 2X/DAY
     Route: 048
     Dates: start: 20020101
  8. PAMELOR [Concomitant]
     Indication: FIBROMYALGIA
     Dosage: 25 MG

REACTIONS (2)
  - PAIN [None]
  - TENDERNESS [None]
